FAERS Safety Report 24690816 (Version 3)
Quarter: 2025Q1

REPORT INFORMATION
  Report Type: Report from Study
  Country: US (occurrence: US)
  Receive Date: 20241203
  Receipt Date: 20250130
  Transmission Date: 20250408
  Serious: Yes (Other)
  Sender: ABBVIE
  Company Number: US-ABBVIE-6025158

PATIENT
  Age: 81 Year
  Sex: Male
  Weight: 108.86 kg

DRUGS (2)
  1. VENCLEXTA [Suspect]
     Active Substance: VENETOCLAX
     Indication: Mantle cell lymphoma
     Dosage: TAKE 2 TABLET(S) BY MOUTH DAILY WITH DINNER
     Route: 048
  2. VENCLEXTA [Suspect]
     Active Substance: VENETOCLAX
     Indication: Mantle cell lymphoma
     Dosage: TAKE 2 TABLET(S) BY MOUTH DAILY WITH DINNER
     Route: 048

REACTIONS (3)
  - Localised infection [Recovered/Resolved]
  - Lymphoedema [Not Recovered/Not Resolved]
  - Off label use [Unknown]

NARRATIVE: CASE EVENT DATE: 20220101
